FAERS Safety Report 12245707 (Version 1)
Quarter: 2016Q2

REPORT INFORMATION
  Report Type: Spontaneous
  Country: US (occurrence: None)
  Receive Date: 20160406
  Receipt Date: 20160406
  Transmission Date: 20160815
  Serious: No
  Sender: FDA-Public Use
  Company Number: None

PATIENT
  Age: 53 Year
  Sex: Female

DRUGS (6)
  1. IBRANCE [Suspect]
     Active Substance: PALBOCICLIB
     Indication: NEOPLASM MALIGNANT
     Dosage: 125MG QD FOR 21DS ORAL
     Route: 048
     Dates: start: 20151117
  2. CALCIUM + D [Concomitant]
     Active Substance: CALCIUM\VITAMIN D
  3. LOSARTAN. [Concomitant]
     Active Substance: LOSARTAN
  4. LETROZOLE. [Concomitant]
     Active Substance: LETROZOLE
  5. AMLODIPINE [Concomitant]
     Active Substance: AMLODIPINE BESYLATE
  6. MULTIVITAMIN [Concomitant]
     Active Substance: VITAMINS

REACTIONS (3)
  - Flatulence [None]
  - Abdominal pain upper [None]
  - Fatigue [None]

NARRATIVE: CASE EVENT DATE: 201602
